FAERS Safety Report 4289373-0 (Version None)
Quarter: 2004Q1

REPORT INFORMATION
  Report Type: 
  Country: None (occurrence: None)
  Receive Date: 20040206
  Receipt Date: 20040121
  Transmission Date: 20041129
  Serious: Yes (Life-Threatening, Hospitalization)
  Sender: FDA-Public Use
  Company Number: DSA_23913_2004

PATIENT
  Age: 1 Day
  Sex: Male

DRUGS (5)
  1. ATIVAN [Suspect]
     Indication: ACCIDENTAL EXPOSURE
     Dates: start: 20031205, end: 20031205
  2. ATIVAN [Suspect]
     Dates: start: 20031205, end: 20031224
  3. PAVULON [Concomitant]
  4. MORPHINE [Concomitant]
  5. PHENOBARBITAL TAB [Concomitant]

REACTIONS (10)
  - ACCIDENTAL EXPOSURE [None]
  - CAESAREAN SECTION [None]
  - CONVULSION [None]
  - DRUG EXPOSURE DURING PREGNANCY [None]
  - DRUG HYPERSENSITIVITY [None]
  - FOETAL DISTRESS SYNDROME [None]
  - HYPERSENSITIVITY [None]
  - MUSCLE RIGIDITY [None]
  - PREMATURE BABY [None]
  - TRACHEOMALACIA [None]
